FAERS Safety Report 18710851 (Version 2)
Quarter: 2021Q2

REPORT INFORMATION
  Report Type: Spontaneous
  Country: US (occurrence: US)
  Receive Date: 20210107
  Receipt Date: 20210411
  Transmission Date: 20210717
  Serious: No
  Sender: FDA-Public Use
  Company Number: US-CELGENEUS-USA-20201208620

PATIENT
  Age: 68 Year
  Sex: Female

DRUGS (2)
  1. ZEPOSIA [Suspect]
     Active Substance: OZANIMOD HYDROCHLORIDE
     Dosage: .92 MILLIGRAM
     Route: 048
     Dates: start: 20201210
  2. ZEPOSIA [Suspect]
     Active Substance: OZANIMOD HYDROCHLORIDE
     Indication: MULTIPLE SCLEROSIS
     Dosage: .92 MILLIGRAM
     Route: 048
     Dates: start: 20201116

REACTIONS (8)
  - Abdominal pain [Recovered/Resolved]
  - Nausea [Recovered/Resolved]
  - Abdominal distension [Recovered/Resolved]
  - Chromaturia [Recovered/Resolved]
  - Pyrexia [Recovered/Resolved]
  - Insomnia [Not Recovered/Not Resolved]
  - Lymphocyte count decreased [Recovered/Resolved]
  - Protein total abnormal [Recovered/Resolved]

NARRATIVE: CASE EVENT DATE: 20201222
